FAERS Safety Report 13419143 (Version 2)
Quarter: 2017Q4

REPORT INFORMATION
  Report Type: Spontaneous
  Country: US (occurrence: US)
  Receive Date: 20170407
  Receipt Date: 20171123
  Transmission Date: 20180320
  Serious: No
  Sender: FDA-Public Use
  Company Number: US-JNJFOC-20170319186

PATIENT
  Sex: Male

DRUGS (7)
  1. RISPERIDONE. [Suspect]
     Active Substance: RISPERIDONE
     Indication: SCHIZOPHRENIA
     Route: 065
     Dates: start: 20110601, end: 20110701
  2. RISPERDAL [Suspect]
     Active Substance: RISPERIDONE
     Indication: SCHIZOPHRENIA
     Dosage: VARYING DOSES OF 1MG, 2 MG, 3 MG AND 4 MG
     Route: 048
     Dates: start: 20060320, end: 20110811
  3. RISPERDAL CONSTA [Suspect]
     Active Substance: RISPERIDONE
     Indication: SCHIZOPHRENIA
     Dosage: VARYING DOSE OF 25 MG, 37.5 MG
     Route: 030
     Dates: start: 20051021, end: 20061228
  4. RISPERDAL [Suspect]
     Active Substance: RISPERIDONE
     Indication: SCHIZOPHRENIA
     Route: 048
     Dates: start: 20070709, end: 20110906
  5. RISPERDAL CONSTA [Suspect]
     Active Substance: RISPERIDONE
     Indication: SCHIZOPHRENIA
     Dosage: VARYING DOSE OF 25 MG, 37.5 MG
     Route: 030
     Dates: start: 20100823, end: 20111017
  6. RISPERDAL [Suspect]
     Active Substance: RISPERIDONE
     Indication: SCHIZOPHRENIA
     Route: 048
     Dates: start: 20051021, end: 20070531
  7. RISPERDAL [Suspect]
     Active Substance: RISPERIDONE
     Indication: SCHIZOPHRENIA
     Dosage: BEDTIME
     Route: 048
     Dates: start: 20051021, end: 20060227

REACTIONS (2)
  - Gynaecomastia [Unknown]
  - Emotional disorder [Unknown]
